FAERS Safety Report 12978681 (Version 1)
Quarter: 2016Q4

REPORT INFORMATION
  Report Type: Spontaneous
  Country: CN (occurrence: CN)
  Receive Date: 20161128
  Receipt Date: 20161128
  Transmission Date: 20170207
  Serious: Yes (Other)
  Sender: FDA-Public Use
  Company Number: CN-PFIZER INC-2016541733

PATIENT
  Age: 48 Year
  Sex: Male
  Weight: 61 kg

DRUGS (3)
  1. PHARMORUBICIN [Suspect]
     Active Substance: EPIRUBICIN
     Indication: HEPATIC CANCER
     Dosage: 30 MG, 1X/DAY
     Dates: start: 20160826, end: 20160826
  2. MITOMYCIN. [Suspect]
     Active Substance: MITOMYCIN
     Indication: HEPATIC CANCER
     Dosage: 10 MG, UNK
     Dates: start: 20160826, end: 20160826
  3. CARBOPLATIN. [Suspect]
     Active Substance: CARBOPLATIN
     Indication: HEPATIC CANCER
     Dosage: 0.3 G, UNK
     Dates: start: 20160826, end: 20160826

REACTIONS (4)
  - Vomiting [Recovered/Resolved]
  - Nausea [Recovered/Resolved]
  - Hypotension [Recovered/Resolved]
  - Product use issue [Unknown]

NARRATIVE: CASE EVENT DATE: 20160826
